FAERS Safety Report 7547439-3 (Version None)
Quarter: 2011Q2

REPORT INFORMATION
  Report Type: 
  Country: None (occurrence: None)
  Receive Date: 20110614
  Receipt Date: 20110606
  Transmission Date: 20111010
  Serious: Yes (Death)
  Sender: FDA-Public Use
  Company Number: US-PURDUE-USA-2011-0069635

PATIENT
  Age: 35 Year
  Sex: Female

DRUGS (2)
  1. MS CONTIN [Suspect]
     Indication: PRODUCT USED FOR UNKNOWN INDICATION
  2. VALIUM [Suspect]
     Indication: PRODUCT USED FOR UNKNOWN INDICATION

REACTIONS (1)
  - DEATH [None]
